FAERS Safety Report 10444739 (Version 4)
Quarter: 2015Q2

REPORT INFORMATION
  Report Type: Spontaneous
  Country: US (occurrence: US)
  Receive Date: 20140910
  Receipt Date: 20150526
  Transmission Date: 20150821
  Serious: Yes (Life-Threatening, Hospitalization, Other)
  Sender: FDA-Public Use
  Company Number: US-BAYER-2014-131953

PATIENT
  Age: 31 Year
  Sex: Female
  Weight: 95 kg

DRUGS (3)
  1. ZOMIG [Concomitant]
     Active Substance: ZOLMITRIPTAN
     Indication: MIGRAINE
     Dosage: 5 MG, UNK
     Route: 048
  2. MIRENA [Suspect]
     Active Substance: LEVONORGESTREL
     Indication: CONTRACEPTION
     Dosage: 20 MCG/24HR, CONT
     Route: 015
     Dates: start: 200601, end: 20101216
  3. IMPLANON [Concomitant]
     Active Substance: ETONOGESTREL
     Dosage: UNK
     Dates: start: 201010, end: 201209

REACTIONS (15)
  - Uterine perforation [None]
  - Fear of death [None]
  - Anxiety [None]
  - Depression [None]
  - Stress [None]
  - Injury [None]
  - Emotional distress [None]
  - Complication of device removal [None]
  - General physical health deterioration [None]
  - Device issue [None]
  - Pelvic inflammatory disease [None]
  - Device breakage [None]
  - Anhedonia [None]
  - Infection [None]
  - Abdominal pain [None]

NARRATIVE: CASE EVENT DATE: 2006
